FAERS Safety Report 8207310-0 (Version None)
Quarter: 2012Q1

REPORT INFORMATION
  Report Type: 
  Country: None (occurrence: None)
  Receive Date: 20120314
  Receipt Date: 20120309
  Transmission Date: 20120608
  Serious: No
  Sender: FDA-Public Use
  Company Number: US-PFIZER INC-2012064819

PATIENT
  Sex: Female

DRUGS (2)
  1. LIPITOR [Suspect]
     Dosage: 80 MG, 1X/DAY
  2. NITROSTAT [Suspect]
     Dosage: 0.4 MG, UNK
     Route: 060

REACTIONS (2)
  - ABDOMINAL DISCOMFORT [None]
  - GASTRIC DISORDER [None]
